FAERS Safety Report 9607830 (Version 1)
Quarter: 2013Q4

REPORT INFORMATION
  Report Type: Spontaneous
  Country: US (occurrence: None)
  Receive Date: 20131008
  Receipt Date: 20131008
  Transmission Date: 20140711
  Serious: Yes (Hospitalization)
  Sender: FDA-Public Use
  Company Number: None

PATIENT
  Age: 58 Year
  Sex: Female

DRUGS (1)
  1. METOCLOPRAMIDE INJECTION [Suspect]
     Indication: NAUSEA
     Dates: start: 20130907, end: 20131010

REACTIONS (2)
  - Injection site inflammation [None]
  - Dermatitis allergic [None]
